FAERS Safety Report 12223452 (Version 1)
Quarter: 2016Q1

REPORT INFORMATION
  Report Type: Spontaneous
  Country: US (occurrence: US)
  Receive Date: 20160330
  Receipt Date: 20160330
  Transmission Date: 20160526
  Serious: No
  Sender: FDA-Public Use
  Company Number: ALCN2014US005439

PATIENT
  Age: 80 Year
  Sex: Female

DRUGS (1)
  1. TRAVATAN Z [Suspect]
     Active Substance: TRAVOPROST
     Indication: GLAUCOMA
     Dosage: 1 UNK, UNK
     Route: 047

REACTIONS (9)
  - Pain in jaw [Unknown]
  - Fatigue [Unknown]
  - Asthenia [Unknown]
  - Lymphadenopathy [Unknown]
  - Depression [Unknown]
  - Visual acuity reduced [Unknown]
  - Neck pain [Unknown]
  - Abdominal pain upper [Unknown]
  - Feeling abnormal [Unknown]
